FAERS Safety Report 4752752-9 (Version None)
Quarter: 2005Q3

REPORT INFORMATION
  Report Type: 
  Country: None (occurrence: None)
  Receive Date: 20050823
  Receipt Date: 20050311
  Transmission Date: 20060218
  Serious: Yes (Disabling)
  Sender: FDA-Public Use
  Company Number: 2005053041

PATIENT
  Age: 70 Year
  Sex: Female
  Weight: 56.246 kg

DRUGS (3)
  1. NORVASC [Suspect]
     Indication: HYPERTENSION
     Dosage: 10 MG 10 MG,1 IN 1 D),ORAL
     Route: 048
  2. CORGARD [Concomitant]
  3. DIOVAN ^CIBA-GEIGY^ (VALSARTAN) [Concomitant]

REACTIONS (3)
  - FLUSHING [None]
  - INFECTION [None]
  - PALPITATIONS [None]
